FAERS Safety Report 12504125 (Version 2)
Quarter: 2016Q2

REPORT INFORMATION
  Report Type: Spontaneous
  Country: JP (occurrence: JP)
  Receive Date: 20160628
  Receipt Date: 20160629
  Transmission Date: 20160815
  Serious: Yes (Death)
  Sender: FDA-Public Use
  Company Number: JP-ELI_LILLY_AND_COMPANY-JP201606008992

PATIENT
  Age: 25 Year
  Sex: Male

DRUGS (5)
  1. CYMBALTA [Suspect]
     Active Substance: DULOXETINE HYDROCHLORIDE
     Indication: DEPRESSION
     Route: 048
  2. AMOXAPINE. [Suspect]
     Active Substance: AMOXAPINE
     Indication: PRODUCT USED FOR UNKNOWN INDICATION
     Route: 048
  3. FLUVOXAMINE [Suspect]
     Active Substance: FLUVOXAMINE
     Indication: PRODUCT USED FOR UNKNOWN INDICATION
     Route: 048
  4. SULPIRIDE [Suspect]
     Active Substance: SULPIRIDE
     Indication: PRODUCT USED FOR UNKNOWN INDICATION
     Route: 048
  5. PHENOBARBITAL. [Suspect]
     Active Substance: PHENOBARBITAL
     Indication: PRODUCT USED FOR UNKNOWN INDICATION

REACTIONS (5)
  - Toxicity to various agents [Fatal]
  - Serotonin syndrome [Fatal]
  - Pyrexia [Fatal]
  - Insomnia [Unknown]
  - Abdominal discomfort [Unknown]
